FAERS Safety Report 16893053 (Version 5)
Quarter: 2022Q1

REPORT INFORMATION
  Report Type: Spontaneous
  Country: NL (occurrence: NL)
  Receive Date: 20191008
  Receipt Date: 20220209
  Transmission Date: 20220424
  Serious: Yes (Hospitalization, Other)
  Sender: FDA-Public Use
  Company Number: NL-EMA-20171106-DEEPEVHUMANP-092100625

PATIENT
  Age: 77 Year
  Sex: Male

DRUGS (5)
  1. FENOTEROL HYDROBROMIDE\IPRATROPIUM BROMIDE [Suspect]
     Active Substance: FENOTEROL HYDROBROMIDE\IPRATROPIUM BROMIDE
     Indication: Product used for unknown indication
     Dosage: UNK, PRN; AS REQUIRED
  2. DIPYRIDAMOLE [Suspect]
     Active Substance: DIPYRIDAMOLE
     Indication: Product used for unknown indication
     Dosage: 20MG, BID
  3. CIPROFLOXACIN [Suspect]
     Active Substance: CIPROFLOXACIN
     Indication: Infection
     Dosage: 750 MG, UNK
     Route: 065
  4. DEXAMETHASONE [Suspect]
     Active Substance: DEXAMETHASONE
     Indication: Product used for unknown indication
  5. LISINOPRIL [Concomitant]
     Active Substance: LISINOPRIL
     Indication: Product used for unknown indication

REACTIONS (8)
  - Abdominal pain [Recovered/Resolved]
  - Renal failure [Recovered/Resolved]
  - Anuria [Recovered/Resolved]
  - Tubulointerstitial nephritis [Recovered/Resolved]
  - Diarrhoea [Recovered/Resolved]
  - Malaise [Recovered/Resolved]
  - Hypotension [Recovered/Resolved]
  - Dehydration [Not Recovered/Not Resolved]
